FAERS Safety Report 8578590 (Version 4)
Quarter: 2013Q1

REPORT INFORMATION
  Report Type: Spontaneous
  Country: CA (occurrence: CA)
  Receive Date: 20120524
  Receipt Date: 20130123
  Transmission Date: 20140127
  Serious: Yes (Hospitalization, Other)
  Sender: FDA-Public Use
  Company Number: CA-ELI_LILLY_AND_COMPANY-CA201205005279

PATIENT
  Age: 69 Year
  Sex: Female
  Weight: 85 kg

DRUGS (19)
  1. FORTEO [Suspect]
     Indication: OSTEOPOROSIS
     Dosage: 20 UG, QD
     Route: 058
     Dates: start: 20111007
  2. FORTEO [Suspect]
  3. FORTEO [Suspect]
     Dosage: 20 UG, QD
     Route: 058
  4. AVALIDE [Concomitant]
  5. ASA [Concomitant]
     Indication: ARTHRALGIA
     Dosage: 650 MG, UNKNOWN
  6. CALCIUM [Concomitant]
     Dosage: 250 MG, UNKNOWN
  7. VITAMIN D NOS [Concomitant]
     Dosage: UNK, BID
  8. VITAMIN D NOS [Concomitant]
     Dosage: 2000 IU, QD
  9. VITAMIN B5                         /00375501/ [Concomitant]
  10. WELLBUTRIN [Concomitant]
     Dosage: 150 MG, UNKNOWN
  11. MVI [Concomitant]
  12. OMEGA 3 [Concomitant]
     Dosage: 1000 U, UNKNOWN
  13. GLUCOSAMINE SULFATE [Concomitant]
     Dosage: UNK
  14. ATORVASTATIN [Concomitant]
  15. CALCIUM CARBONATE [Concomitant]
  16. METFORMIN [Concomitant]
     Dosage: 500 MG, BID
  17. PANTOPRAZOLE [Concomitant]
  18. RAMIPRIL [Concomitant]
     Dosage: 5 MG, UNK
  19. WARFARIN [Concomitant]

REACTIONS (9)
  - Cerebellar infarction [Recovering/Resolving]
  - Mobility decreased [Recovering/Resolving]
  - Hemiparesis [Not Recovered/Not Resolved]
  - Balance disorder [Recovering/Resolving]
  - Gait disturbance [Recovering/Resolving]
  - Coordination abnormal [Recovering/Resolving]
  - Bradycardia [Unknown]
  - Blood pressure systolic increased [Recovering/Resolving]
  - Blood cholesterol increased [Unknown]
